FAERS Safety Report 8018707-6 (Version None)
Quarter: 2012Q1

REPORT INFORMATION
  Report Type: 
  Country: None (occurrence: None)
  Receive Date: 20120103
  Receipt Date: 20120103
  Transmission Date: 20120608
  Serious: Yes (Hospitalization, Other)
  Sender: FDA-Public Use
  Company Number: None

PATIENT
  Sex: Female

DRUGS (2)
  1. MIRENA [Suspect]
     Indication: DYSMENORRHOEA
     Route: 015
     Dates: start: 20090601, end: 20111215
  2. MIRENA [Suspect]
     Indication: MENORRHAGIA
     Route: 015
     Dates: start: 20090601, end: 20111215

REACTIONS (1)
  - CYSTITIS INTERSTITIAL [None]
